FAERS Safety Report 9255095 (Version 2)
Quarter: 2013Q2

REPORT INFORMATION
  Report Type: Spontaneous
  Country: US (occurrence: US)
  Receive Date: 20130425
  Receipt Date: 20130506
  Transmission Date: 20140414
  Serious: No
  Sender: FDA-Public Use
  Company Number: US-PFIZER INC-2013129039

PATIENT
  Sex: Female

DRUGS (3)
  1. LYRICA [Suspect]
     Indication: FIBROMYALGIA
     Dosage: 150 MG CAPSULE, 2X/DAY
     Route: 048
  2. LYRICA [Suspect]
     Indication: DIABETIC NEUROPATHY
     Dosage: UNK
     Route: 048
  3. LYRICA [Suspect]
     Indication: PAIN IN EXTREMITY

REACTIONS (4)
  - Limb discomfort [Not Recovered/Not Resolved]
  - Therapeutic response unexpected [Unknown]
  - Dry mouth [Unknown]
  - Tremor [Unknown]
